FAERS Safety Report 5614362-0 (Version None)
Quarter: 2008Q1

REPORT INFORMATION
  Report Type: 
  Country: None (occurrence: None)
  Receive Date: 20080205
  Receipt Date: 20080124
  Transmission Date: 20080703
  Serious: Yes (Death, Other)
  Sender: FDA-Public Use
  Company Number: US-PFIZER INC-2008008498

PATIENT
  Sex: Female
  Weight: 50.8 kg

DRUGS (2)
  1. NEURONTIN [Suspect]
     Indication: NEUROPATHY PERIPHERAL
     Dates: start: 20070301, end: 20070501
  2. INSULIN [Concomitant]

REACTIONS (7)
  - ABNORMAL DREAMS [None]
  - DELUSION [None]
  - DEPRESSED MOOD [None]
  - DIABETES MELLITUS [None]
  - FEELING ABNORMAL [None]
  - INADEQUATE DIET [None]
  - TREATMENT NONCOMPLIANCE [None]
